FAERS Safety Report 12608192 (Version 6)
Quarter: 2017Q1

REPORT INFORMATION
  Report Type: Spontaneous
  Country: JP (occurrence: JP)
  Receive Date: 20160729
  Receipt Date: 20170104
  Transmission Date: 20170428
  Serious: Yes (Death, Hospitalization, Other)
  Sender: FDA-Public Use
  Company Number: JP-CELGENEUS-JPN-2016075301

PATIENT
  Age: 64 Year
  Sex: Female

DRUGS (14)
  1. KAYEXALATE [Concomitant]
     Active Substance: SODIUM POLYSTYRENE SULFONATE
     Indication: RENAL FAILURE
     Dosage: 3.27 GRAM
     Route: 048
  2. ZOLPIDEM TARTRATE. [Concomitant]
     Active Substance: ZOLPIDEM TARTRATE
     Indication: PROPHYLAXIS
     Dosage: 5 MILLIGRAM
     Route: 048
  3. RED BLOOD CELLS [Concomitant]
     Active Substance: HUMAN RED BLOOD CELL
     Dosage: 2 IU (INTERNATIONAL UNIT)
     Route: 041
     Dates: start: 20160701, end: 20160701
  4. LENADEX [Suspect]
     Active Substance: DEXAMETHASONE ACETATE
     Indication: PLASMA CELL MYELOMA
     Dosage: 20 MILLIGRAM
     Route: 048
     Dates: start: 201311, end: 20160627
  5. CALONAL [Concomitant]
     Active Substance: ACETAMINOPHEN
     Indication: PAIN PROPHYLAXIS
     Dosage: 1800 MILLIGRAM
     Route: 048
     Dates: start: 20160704, end: 20160718
  6. RABEPRAZOLE NA [Concomitant]
     Active Substance: RABEPRAZOLE SODIUM
     Indication: PROPHYLAXIS AGAINST GASTROINTESTINAL ULCER
     Dosage: 10 MILLIGRAM
     Route: 048
  7. CALTAN [Concomitant]
     Active Substance: CALCIUM CARBONATE
     Indication: RENAL FAILURE
     Dosage: 1500 MILLIGRAM
     Route: 048
     Dates: start: 2014
  8. RED BLOOD CELLS [Concomitant]
     Active Substance: HUMAN RED BLOOD CELL
     Indication: PRODUCT USED FOR UNKNOWN INDICATION
     Dosage: 2 IU (INTERNATIONAL UNIT)
     Route: 041
     Dates: start: 20160610, end: 20160610
  9. RED BLOOD CELLS [Concomitant]
     Active Substance: HUMAN RED BLOOD CELL
     Dosage: 2 IU (INTERNATIONAL UNIT)
     Route: 041
     Dates: start: 20160617, end: 20160617
  10. VALTREX [Concomitant]
     Active Substance: VALACYCLOVIR HYDROCHLORIDE
     Indication: PLASMA CELL MYELOMA
     Dosage: 500 MILLIGRAM
     Route: 048
  11. RED BLOOD CELLS [Concomitant]
     Active Substance: HUMAN RED BLOOD CELL
     Dosage: 2 IU (INTERNATIONAL UNIT)
     Route: 041
     Dates: start: 20160706, end: 20160706
  12. RED BLOOD CELLS [Concomitant]
     Active Substance: HUMAN RED BLOOD CELL
     Dosage: 2 IU (INTERNATIONAL UNIT)
     Route: 041
     Dates: start: 20160711, end: 20160711
  13. PENTAMIDINE ISETIONATE [Concomitant]
     Active Substance: PENTAMIDINE ISETHIONATE
     Indication: INFECTION PROPHYLAXIS
     Dosage: 7200 MILLIGRAM
     Route: 065
     Dates: start: 201310
  14. POMALYST [Suspect]
     Active Substance: POMALIDOMIDE
     Indication: PLASMA CELL MYELOMA
     Dosage: 4 MILLIGRAM
     Route: 048
     Dates: start: 20160607, end: 20160627

REACTIONS (8)
  - Neutrophil count decreased [Not Recovered/Not Resolved]
  - Bronchopulmonary aspergillosis [Fatal]
  - Febrile neutropenia [Unknown]
  - Haemorrhagic diathesis [Unknown]
  - Plasma cell myeloma [Fatal]
  - Pneumonia [Fatal]
  - Platelet count decreased [Not Recovered/Not Resolved]
  - Respiratory failure [Unknown]

NARRATIVE: CASE EVENT DATE: 20160610
